FAERS Safety Report 4872715-2 (Version None)
Quarter: 2006Q1

REPORT INFORMATION
  Report Type: 
  Country: None (occurrence: None)
  Receive Date: 20060103
  Receipt Date: 20051219
  Transmission Date: 20060701
  Serious: Yes (Other)
  Sender: FDA-Public Use
  Company Number: US200512003468

PATIENT
  Age: 60 Year
  Sex: Female

DRUGS (2)
  1. FORTEO [Suspect]
     Indication: OSTEOPOROSIS
     Dates: start: 20051126, end: 20051207
  2. FORTEO PEN (FORTEO PEN) [Concomitant]

REACTIONS (1)
  - MULTIPLE MYELOMA [None]
